FAERS Safety Report 18512710 (Version 1)
Quarter: 2020Q4

REPORT INFORMATION
  Report Type: Report from Study
  Country: US (occurrence: US)
  Receive Date: 20201117
  Receipt Date: 20201117
  Transmission Date: 20210114
  Serious: Yes (Other)
  Sender: FDA-Public Use
  Company Number: US-SHIRE-US202012626

PATIENT
  Age: 67 Year
  Sex: Female

DRUGS (3)
  1. HIZENTRA [Concomitant]
     Active Substance: HUMAN IMMUNOGLOBULIN G
     Indication: PRODUCT USED FOR UNKNOWN INDICATION
  2. HUMAN NORMAL IMMUNOGLOBULIN; LIQUID 20 [Suspect]
     Active Substance: HUMAN IMMUNOGLOBULIN G
     Indication: HYPOGAMMAGLOBULINAEMIA
     Dosage: 30 GRAM, 1X/2WKS
     Route: 065
     Dates: start: 201810
  3. HUMAN NORMAL IMMUNOGLOBULIN; LIQUID 20 [Suspect]
     Active Substance: HUMAN IMMUNOGLOBULIN G
     Indication: IMMUNODEFICIENCY COMMON VARIABLE

REACTIONS (27)
  - Exposure to toxic agent [Unknown]
  - Blood testosterone increased [Unknown]
  - Abscess oral [Unknown]
  - Malaise [Unknown]
  - Nausea [Unknown]
  - Spinal pain [Not Recovered/Not Resolved]
  - Hormone level abnormal [Not Recovered/Not Resolved]
  - Scar pain [Unknown]
  - Pain [Not Recovered/Not Resolved]
  - Fatigue [Unknown]
  - Suspected COVID-19 [Unknown]
  - Clostridium difficile infection [Unknown]
  - Autoimmune disorder [Unknown]
  - Loose tooth [Unknown]
  - Dyspnoea [Unknown]
  - Rheumatoid arthritis [Not Recovered/Not Resolved]
  - Abscess [Unknown]
  - Fibromyalgia [Not Recovered/Not Resolved]
  - Fungal infection [Unknown]
  - Irritability [Unknown]
  - Alopecia [Unknown]
  - Inflammation [Unknown]
  - Pyrexia [Unknown]
  - Pneumonia [Unknown]
  - Skin odour abnormal [Unknown]
  - Anxiety [Unknown]
  - Cough [Unknown]

NARRATIVE: CASE EVENT DATE: 20201106
